FAERS Safety Report 6641342-9 (Version None)
Quarter: 2010Q1

REPORT INFORMATION
  Report Type: 
  Country: None (occurrence: None)
  Receive Date: 20100318
  Receipt Date: 20100304
  Transmission Date: 20100710
  Serious: Yes (Hospitalization)
  Sender: FDA-Public Use
  Company Number: KP-TYCO HEALTHCARE/MALLINCKRODT-T201000824

PATIENT
  Sex: Female
  Weight: 55 kg

DRUGS (3)
  1. EXALGO EXTENDED RELEASE [Suspect]
     Indication: PAIN MANAGEMENT
     Dosage: 8 MG, QD
     Route: 048
     Dates: start: 20100128, end: 20100215
  2. EXALGO EXTENDED RELEASE [Suspect]
     Dosage: 8 MG, QD
     Route: 048
     Dates: start: 20100217
  3. CHEMOTHERAPEUTICS NOS [Concomitant]
     Indication: CHEMOTHERAPY
     Dosage: UNK

REACTIONS (2)
  - FALL [None]
  - HUMERUS FRACTURE [None]
